FAERS Safety Report 8618682-7 (Version None)
Quarter: 2012Q3

REPORT INFORMATION
  Report Type: 
  Country: None (occurrence: None)
  Receive Date: 20120810
  Receipt Date: 20120727
  Transmission Date: 20120928
  Serious: Yes (Death, Other)
  Sender: FDA-Public Use
  Company Number: TPA2012A03435

PATIENT
  Age: 64 Year
  Sex: Male

DRUGS (7)
  1. LANTUS [Concomitant]
  2. LEVEMIR [Concomitant]
  3. ACTOS [Suspect]
     Indication: TYPE 2 DIABETES MELLITUS
     Dosage: 15 MG, 1 IN 1 D ; 30 MG, 1 IN 1 D ; 45 MG, 1 IN 1 D
     Dates: start: 20050713, end: 20051201
  4. ACTOS [Suspect]
     Indication: TYPE 2 DIABETES MELLITUS
     Dosage: 15 MG, 1 IN 1 D ; 30 MG, 1 IN 1 D ; 45 MG, 1 IN 1 D
     Dates: start: 20010101, end: 20050101
  5. ACTOS [Suspect]
     Indication: TYPE 2 DIABETES MELLITUS
     Dosage: 15 MG, 1 IN 1 D ; 30 MG, 1 IN 1 D ; 45 MG, 1 IN 1 D
     Dates: start: 20050512, end: 20050610
  6. GLUCOPHAGE [Concomitant]
  7. AVANDIA [Concomitant]

REACTIONS (1)
  - BLADDER CANCER [None]
